FAERS Safety Report 23035090 (Version 1)
Quarter: 2023Q4

REPORT INFORMATION
  Report Type: Spontaneous
  Country: US (occurrence: US)
  Receive Date: 20231005
  Receipt Date: 20231005
  Transmission Date: 20240109
  Serious: No
  Sender: FDA-Public Use
  Company Number: US-ELI_LILLY_AND_COMPANY-US202310002706

PATIENT
  Age: 62 Year
  Sex: Female

DRUGS (1)
  1. EMGALITY [Suspect]
     Active Substance: GALCANEZUMAB-GNLM
     Indication: Product used for unknown indication
     Dosage: 240 MG, OTHER (ASA LOADING DOSE)
     Route: 065

REACTIONS (3)
  - Underdose [Unknown]
  - Injection site erythema [Unknown]
  - Injection site haemorrhage [Unknown]

NARRATIVE: CASE EVENT DATE: 20231004
